FAERS Safety Report 15099836 (Version 1)
Quarter: 2018Q3

REPORT INFORMATION
  Report Type: Spontaneous
  Country: FI (occurrence: FI)
  Receive Date: 20180703
  Receipt Date: 20180703
  Transmission Date: 20181010
  Serious: Yes (Other)
  Sender: FDA-Public Use
  Company Number: FI-BRISTOL-MYERS SQUIBB COMPANY-BMS-2018-057749

PATIENT
  Age: 84 Year
  Sex: Female

DRUGS (2)
  1. TAMSULOSIN [Interacting]
     Active Substance: TAMSULOSIN
     Indication: URINARY INCONTINENCE
     Dosage: UNK
     Route: 048
  2. WARFARIN SODIUM. [Suspect]
     Active Substance: WARFARIN SODIUM
     Indication: PRODUCT USED FOR UNKNOWN INDICATION
     Dosage: UNK
     Route: 065

REACTIONS (8)
  - Haematoma [Unknown]
  - Eye disorder [Not Recovered/Not Resolved]
  - Intraocular pressure increased [Not Recovered/Not Resolved]
  - Off label use [Unknown]
  - International normalised ratio abnormal [Unknown]
  - Palpitations [Unknown]
  - Headache [Unknown]
  - Drug interaction [Unknown]

NARRATIVE: CASE EVENT DATE: 2018
